FAERS Safety Report 17319425 (Version 1)
Quarter: 2020Q1

REPORT INFORMATION
  Report Type: Spontaneous
  Country: CN (occurrence: CN)
  Receive Date: 20200124
  Receipt Date: 20200124
  Transmission Date: 20200409
  Serious: Yes (Hospitalization, Other)
  Sender: FDA-Public Use
  Company Number: CN-BAXTER-2020BAX001598

PATIENT
  Age: 16 Year
  Sex: Male

DRUGS (6)
  1. ENDOXAN (CYCLOPHOSPHAMIDE MONOHYDRATE) [Suspect]
     Active Substance: CYCLOPHOSPHAMIDE
     Indication: BONE CANCER
     Dosage: ENDOXAN 2200 MG + 0.9% NS 500 ML
     Route: 041
     Dates: start: 20191225, end: 20191225
  2. SIIKE [VINDESINE SULFATE] [Suspect]
     Active Substance: VINDESINE SULFATE
     Indication: BONE CANCER
     Dosage: SIIKE 5 MG + 0.9% NS 40 ML
     Route: 041
     Dates: start: 20191225, end: 20191225
  3. 0.9% SODIUM CHLORIDE INJECTION [Suspect]
     Active Substance: SODIUM CHLORIDE
     Dosage: SIIKE 5 MG + 0.9% NS 40 ML
     Route: 041
     Dates: start: 20191225, end: 20191225
  4. DOXORUBICIN HYDROCHLORIDE LIPOSOME [Suspect]
     Active Substance: DOXORUBICIN HYDROCHLORIDE
     Indication: BONE CANCER
     Dosage: DOXORUBICIN HYDROCHLORIDE LIPOSOME 60 MG + 5% GS 250 ML
     Route: 041
     Dates: start: 20191225, end: 20191225
  5. 0.9% SODIUM CHLORIDE INJECTION [Suspect]
     Active Substance: SODIUM CHLORIDE
     Indication: MEDICATION DILUTION
     Dosage: ENDOXAN 2200 MG + 0.9% NS 500 ML
     Route: 041
     Dates: start: 20191225, end: 20191225
  6. 5% GLUCOSE  INJECTION [Suspect]
     Active Substance: DEXTROSE
     Indication: MEDICATION DILUTION
     Dosage: DOXORUBICIN HYDROCHLORIDE LIPOSOME 60 MG + 5% GS 250 ML
     Route: 041
     Dates: start: 20191225, end: 20191225

REACTIONS (4)
  - Neutropenia [Recovering/Resolving]
  - Bone marrow failure [Unknown]
  - Platelet count decreased [Recovering/Resolving]
  - White blood cell count decreased [Recovering/Resolving]

NARRATIVE: CASE EVENT DATE: 20200104
